FAERS Safety Report 25005288 (Version 1)
Quarter: 2025Q1

REPORT INFORMATION
  Report Type: Spontaneous
  Country: US (occurrence: US)
  Receive Date: 20250224
  Receipt Date: 20250224
  Transmission Date: 20250409
  Serious: Yes (Hospitalization)
  Sender: FRESENIUS KABI
  Company Number: US-FreseniusKabi-FK202502717

PATIENT
  Age: 57 Year
  Sex: Female
  Weight: 102 kg

DRUGS (5)
  1. VINBLASTINE [Suspect]
     Active Substance: VINBLASTINE
     Indication: Lymphoma
     Route: 042
     Dates: start: 20250114
  2. BRENTUXIMAB VEDOTIN [Suspect]
     Active Substance: BRENTUXIMAB VEDOTIN
     Indication: Hodgkin^s disease
     Dosage: FORM OF ADMINISTRATION: POWDER FOR SOLUTION FOR INJECTION?CYCLIC (1.2 MG/KG ONCE EVERY 2 WEEKS)
     Route: 042
     Dates: start: 20250114
  3. DOXORUBICIN HYDROCHLORIDE [Suspect]
     Active Substance: DOXORUBICIN HYDROCHLORIDE
     Indication: Lymphoma
     Route: 042
     Dates: start: 20250114
  4. DACARBAZINE [Suspect]
     Active Substance: DACARBAZINE
     Indication: Lymphoma
     Route: 042
  5. LORAZEPAM [Concomitant]
     Active Substance: LORAZEPAM
     Indication: Anxiety
     Route: 042
     Dates: start: 20250128

REACTIONS (2)
  - Diverticulitis [Not Recovered/Not Resolved]
  - Hepatic steatosis [Not Recovered/Not Resolved]

NARRATIVE: CASE EVENT DATE: 20250205
